FAERS Safety Report 7197953-8 (Version None)
Quarter: 2010Q4

REPORT INFORMATION
  Report Type: 
  Country: None (occurrence: None)
  Receive Date: 20101227
  Receipt Date: 20101217
  Transmission Date: 20110411
  Serious: Yes (Hospitalization)
  Sender: FDA-Public Use
  Company Number: US-ROCHE-748285

PATIENT
  Sex: Female

DRUGS (8)
  1. TRASTUZUMAB [Suspect]
     Indication: BREAST CANCER
     Route: 042
     Dates: start: 20101006
  2. PEGFILGRASTIM [Suspect]
     Indication: BREAST CANCER
     Dosage: FORM: SOLUTION FOR INJACTION.
     Route: 065
  3. LAPATINIB [Suspect]
     Indication: BREAST CANCER
     Dosage: FREQUECNCY: DAILY
     Route: 048
     Dates: start: 20101006, end: 20101029
  4. LAPATINIB [Suspect]
     Route: 048
     Dates: start: 20101103
  5. DOCETAXEL [Suspect]
     Indication: BREAST CANCER
     Dosage: DOSE: 75 MG/M2 CYCLIC
     Route: 042
     Dates: start: 20101006
  6. CARBOPLATIN [Suspect]
     Indication: BREAST CANCER
     Route: 042
     Dates: start: 20101006
  7. CARBOPLATIN [Suspect]
     Dosage: DOSE INCREASED
     Route: 042
  8. DEXAMETASONE [Concomitant]

REACTIONS (1)
  - SUPRAVENTRICULAR TACHYCARDIA [None]
